FAERS Safety Report 9081880 (Version 1)
Quarter: 2013Q1

REPORT INFORMATION
  Report Type: Spontaneous
  Country: US (occurrence: US)
  Receive Date: 20130218
  Receipt Date: 20130218
  Transmission Date: 20140127
  Serious: No
  Sender: FDA-Public Use
  Company Number: US-PFIZER INC-2013033128

PATIENT
  Age: 48 Year
  Sex: Female
  Weight: 50.79 kg

DRUGS (3)
  1. ENBREL [Suspect]
     Indication: RHEUMATOID ARTHRITIS
     Dosage: 50 MG WEEKLY
     Route: 058
     Dates: start: 20120427, end: 201209
  2. METHOTREXATE SODIUM [Suspect]
     Dosage: 8 TABLETS WEEKLY
     Dates: start: 201206, end: 201210
  3. FOLIC ACID [Concomitant]
     Dosage: UNK

REACTIONS (1)
  - Alopecia [Recovering/Resolving]
